FAERS Safety Report 5706012-X (Version None)
Quarter: 2008Q2

REPORT INFORMATION
  Report Type: 
  Country: None (occurrence: None)
  Receive Date: 20080415
  Receipt Date: 20080407
  Transmission Date: 20081010
  Serious: Yes (Hospitalization)
  Sender: FDA-Public Use
  Company Number: PHBS2008IN03930

PATIENT
  Age: 55 Year
  Sex: Female

DRUGS (7)
  1. DICLOFENAC SODIUM [Suspect]
     Dosage: 75 MG, UNK
  2. METOPROLOL [Suspect]
     Indication: HYPERTENSION
     Route: 042
  3. RAMIPRIL [Concomitant]
  4. INSULIN [Concomitant]
  5. PROPOFOL [Concomitant]
     Indication: ANAESTHESIA PROCEDURE
  6. FENTANYL [Concomitant]
     Indication: ANAESTHESIA PROCEDURE
  7. VECURONIUM BROMIDE [Concomitant]
     Indication: ANAESTHESIA PROCEDURE

REACTIONS (4)
  - ANAPHYLACTIC REACTION [None]
  - BLOOD PRESSURE DECREASED [None]
  - BRONCHOSPASM [None]
  - URTICARIA [None]
